FAERS Safety Report 22585411 (Version 1)
Quarter: 2023Q2

REPORT INFORMATION
  Report Type: Spontaneous
  Country: US (occurrence: US)
  Receive Date: 20230610
  Receipt Date: 20230610
  Transmission Date: 20230721
  Serious: Yes (Other)
  Sender: FDA-Public Use
  Company Number: US-AMGEN-USASP2023094481

PATIENT

DRUGS (5)
  1. BEVACIZUMAB [Suspect]
     Active Substance: BEVACIZUMAB
     Indication: Macular oedema
  2. DEXAMETHASONE [Concomitant]
     Active Substance: DEXAMETHASONE
     Indication: Macular oedema
     Route: 065
  3. TRIAMCINOLONE [Concomitant]
     Active Substance: TRIAMCINOLONE
     Indication: Macular oedema
  4. RANIBIZUMAB [Concomitant]
     Active Substance: RANIBIZUMAB
     Indication: Macular oedema
     Route: 065
  5. AFLIBERCEPT [Concomitant]
     Active Substance: AFLIBERCEPT
     Indication: Macular oedema
     Route: 065

REACTIONS (13)
  - Hypotony of eye [Recovered/Resolved]
  - Ocular hypertension [Recovered/Resolved]
  - Vitreous haemorrhage [Recovered/Resolved]
  - Rhegmatogenous retinal detachment [Unknown]
  - Choroidal detachment [Recovered/Resolved]
  - Glaucoma [Unknown]
  - Retinal detachment [Unknown]
  - Cataract [Unknown]
  - Device dislocation [Unknown]
  - Eye injury [Unknown]
  - Corneal oedema [Unknown]
  - Postoperative wound complication [Unknown]
  - Off label use [Unknown]
